FAERS Safety Report 22169340 (Version 1)
Quarter: 2023Q2

REPORT INFORMATION
  Report Type: Report from Study
  Country: US (occurrence: US)
  Receive Date: 20230404
  Receipt Date: 20230404
  Transmission Date: 20230721
  Serious: Yes (Hospitalization)
  Sender: FDA-Public Use
  Company Number: US-JNJFOC-20230376442

PATIENT
  Age: 7 Year
  Sex: Female
  Weight: 36.9 kg

DRUGS (3)
  1. INFLIXIMAB [Suspect]
     Active Substance: INFLIXIMAB
     Indication: Inflammatory bowel disease
     Route: 041
     Dates: start: 20140618, end: 20180516
  2. RINVOQ [Concomitant]
     Active Substance: UPADACITINIB
     Dosage: LAST ADMINISTRATION ON 07-DEC-2022
     Dates: start: 20220821
  3. RINVOQ [Concomitant]
     Active Substance: UPADACITINIB
     Dates: start: 20220821, end: 20221207

REACTIONS (1)
  - Malnutrition [Recovered/Resolved]

NARRATIVE: CASE EVENT DATE: 20221208
